FAERS Safety Report 10584869 (Version 1)
Quarter: 2014Q4

REPORT INFORMATION
  Report Type: Spontaneous
  Country: GB (occurrence: GB)
  Receive Date: 20141114
  Receipt Date: 20141114
  Transmission Date: 20150529
  Serious: Yes (Death, Hospitalization, Other)
  Sender: FDA-Public Use
  Company Number: PHHY2014GB148126

PATIENT
  Age: 25 Year
  Sex: Female

DRUGS (5)
  1. COCODAMOL [Concomitant]
     Active Substance: ACETAMINOPHEN\CODEINE PHOSPHATE
     Indication: PHARYNGITIS STREPTOCOCCAL
     Route: 048
  2. IBUPROFEN. [Suspect]
     Active Substance: IBUPROFEN
     Route: 048
  3. LEMSIP MAX [Suspect]
     Active Substance: ACETAMINOPHEN\CAFFEINE\GUAIFENESIN\PHENYLEPHRINE
     Indication: NASOPHARYNGITIS
     Route: 048
  4. PARACETAMOL [Suspect]
     Active Substance: ACETAMINOPHEN
     Route: 048
     Dates: start: 201012
  5. ANTIBIOTICS [Concomitant]
     Active Substance: UNSPECIFIED INGREDIENT
     Indication: LOWER RESPIRATORY TRACT INFECTION
     Route: 048

REACTIONS (17)
  - Hallucination [Not Recovered/Not Resolved]
  - Gait disturbance [Not Recovered/Not Resolved]
  - Pharyngitis streptococcal [Not Recovered/Not Resolved]
  - Drug administration error [Fatal]
  - Aphthous stomatitis [Unknown]
  - Pharyngeal erythema [Unknown]
  - Abnormal behaviour [Not Recovered/Not Resolved]
  - Accidental overdose [Fatal]
  - Memory impairment [Not Recovered/Not Resolved]
  - Vomiting [Not Recovered/Not Resolved]
  - Hepatic failure [Fatal]
  - Dysphagia [Not Recovered/Not Resolved]
  - Restlessness [Not Recovered/Not Resolved]
  - Chromaturia [Not Recovered/Not Resolved]
  - Jaundice [Not Recovered/Not Resolved]
  - Yellow skin [Not Recovered/Not Resolved]
  - Mouth cyst [Unknown]

NARRATIVE: CASE EVENT DATE: 201012
